FAERS Safety Report 9964015 (Version 1)
Quarter: 2014Q1

REPORT INFORMATION
  Report Type: Spontaneous
  Country: US (occurrence: US)
  Receive Date: 20140305
  Receipt Date: 20140305
  Transmission Date: 20141002
  Serious: Yes (Hospitalization)
  Sender: FDA-Public Use
  Company Number: US-GLAXOSMITHKLINE-A1062703A

PATIENT
  Age: 63 Year
  Sex: Male

DRUGS (5)
  1. VENTOLIN [Suspect]
     Indication: ASTHMA
     Dosage: 2PUFF AS REQUIRED
     Route: 055
     Dates: start: 201112
  2. ALBUTEROL NEBULIZER [Concomitant]
  3. SPIRIVA [Concomitant]
  4. SYMBICORT [Concomitant]
  5. AMLODIPINE [Concomitant]

REACTIONS (1)
  - Lung neoplasm [Not Recovered/Not Resolved]
